FAERS Safety Report 19861000 (Version 2)
Quarter: 2021Q4

REPORT INFORMATION
  Report Type: Report from Study
  Country: CO (occurrence: CO)
  Receive Date: 20210921
  Receipt Date: 20211005
  Transmission Date: 20220303
  Serious: Yes (Other)
  Sender: FDA-Public Use
  Company Number: NVSC2021CO210212

PATIENT
  Sex: Female
  Weight: 55 kg

DRUGS (4)
  1. ELTROMBOPAG OLAMINE [Suspect]
     Active Substance: ELTROMBOPAG OLAMINE
     Indication: Immune thrombocytopenia
     Dosage: 50 MG, QD
     Route: 048
     Dates: start: 20190413
  2. ELTROMBOPAG OLAMINE [Suspect]
     Active Substance: ELTROMBOPAG OLAMINE
     Dosage: 50 MG, QD
     Route: 048
  3. FOLIC ACID [Concomitant]
     Active Substance: FOLIC ACID
     Indication: Product used for unknown indication
     Dosage: DAILY
     Route: 048
     Dates: start: 202105
  4. MESALAMINE [Concomitant]
     Active Substance: MESALAMINE
     Indication: Colitis
     Dosage: 3 G, QD (9 YEARS AGO)
     Route: 048

REACTIONS (8)
  - Glaucoma [Unknown]
  - Visual impairment [Unknown]
  - Insomnia [Unknown]
  - Feeling of despair [Unknown]
  - Stress [Unknown]
  - Peripheral swelling [Unknown]
  - Decreased appetite [Unknown]
  - Weight decreased [Unknown]
